FAERS Safety Report 8589746-1 (Version None)
Quarter: 2012Q3

REPORT INFORMATION
  Report Type: 
  Country: None (occurrence: None)
  Receive Date: 20120813
  Receipt Date: 20120802
  Transmission Date: 20120928
  Serious: Yes (Other)
  Sender: FDA-Public Use
  Company Number: BG-ASTRAZENECA-2012SE53234

PATIENT
  Age: 47 Year
  Sex: Male

DRUGS (5)
  1. ASPIRIN [Concomitant]
     Indication: INFARCTION
     Route: 048
     Dates: start: 20120501
  2. METOPROLOL SUCCINATE [Concomitant]
     Route: 048
  3. BRILINTA [Suspect]
     Indication: INFARCTION
     Route: 048
     Dates: start: 20120601
  4. METOPROLOL SUCCINATE [Concomitant]
     Indication: INFARCTION
     Route: 048
     Dates: start: 20120501
  5. CRESTOR [Concomitant]
     Indication: INFARCTION
     Route: 048
     Dates: start: 20120501

REACTIONS (1)
  - EXTRASYSTOLES [None]
